FAERS Safety Report 6752416-6 (Version None)
Quarter: 2010Q2

REPORT INFORMATION
  Report Type: 
  Country: None (occurrence: None)
  Receive Date: 20100602
  Receipt Date: 20100527
  Transmission Date: 20101027
  Serious: Yes (Death, Life-Threatening, Hospitalization, Other)
  Sender: FDA-Public Use
  Company Number: HQWYE400228AUG03

PATIENT
  Sex: Female

DRUGS (4)
  1. PREMARIN [Suspect]
  2. PROVERA [Suspect]
  3. NORETHINDRONE ACETATE [Suspect]
  4. PREMPRO [Suspect]

REACTIONS (2)
  - BREAST CANCER METASTATIC [None]
  - LUNG NEOPLASM MALIGNANT [None]
